FAERS Safety Report 8089166-2 (Version None)
Quarter: 2012Q1

REPORT INFORMATION
  Report Type: 
  Country: None (occurrence: None)
  Receive Date: 20120128
  Receipt Date: 20110829
  Transmission Date: 20120608
  Serious: No
  Sender: FDA-Public Use
  Company Number: US-ABBOTT-11P-163-0731646-00

PATIENT
  Age: 27 Year
  Sex: Female

DRUGS (5)
  1. FOLIC ACID [Concomitant]
     Indication: PRODUCT USED FOR UNKNOWN INDICATION
     Dosage: 1-2MG DAILY
     Route: 048
  2. XANAX [Concomitant]
     Indication: ANXIETY
  3. HUMIRA [Suspect]
     Indication: RHEUMATOID ARTHRITIS
     Dates: start: 20110609
  4. METHOTREXATE [Concomitant]
     Indication: PRODUCT USED FOR UNKNOWN INDICATION
     Route: 050
  5. PROZAC [Concomitant]
     Indication: ANXIETY

REACTIONS (6)
  - TREMOR [None]
  - BLOOD URINE PRESENT [None]
  - INJECTION SITE PAIN [None]
  - MUSCLE TWITCHING [None]
  - HEPATIC ENZYME INCREASED [None]
  - FATIGUE [None]
